FAERS Safety Report 10136336 (Version 3)
Quarter: 2015Q3

REPORT INFORMATION
  Report Type: Report from Study
  Country: US (occurrence: US)
  Receive Date: 20140429
  Receipt Date: 20150901
  Transmission Date: 20151125
  Serious: Yes (Other)
  Sender: FDA-Public Use
  Company Number: US-AMGEN-USASP2014029955

PATIENT
  Age: 30 Year
  Sex: Female

DRUGS (1)
  1. ENBREL [Suspect]
     Active Substance: ETANERCEPT
     Indication: RHEUMATOID ARTHRITIS
     Dosage: 50 MG, QWK
     Route: 065
     Dates: start: 20140124

REACTIONS (6)
  - Migraine [Not Recovered/Not Resolved]
  - Injection site urticaria [Unknown]
  - Contusion [Unknown]
  - Erythema [Not Recovered/Not Resolved]
  - Increased tendency to bruise [Unknown]
  - Injection site bruising [Unknown]

NARRATIVE: CASE EVENT DATE: 201401
